FAERS Safety Report 9397907 (Version 1)
Quarter: 2013Q3

REPORT INFORMATION
  Report Type: Spontaneous
  Country: US (occurrence: None)
  Receive Date: 20130709
  Receipt Date: 20130709
  Transmission Date: 20140515
  Serious: Yes (Death)
  Sender: FDA-Public Use
  Company Number: TPA2013A06305

PATIENT
  Sex: Female

DRUGS (1)
  1. COLCRYS [Suspect]
     Dosage: 1 IN 1 D

REACTIONS (1)
  - Death [None]
